FAERS Safety Report 21034421 (Version 1)
Quarter: 2022Q3

REPORT INFORMATION
  Report Type: Spontaneous
  Country: IE (occurrence: IE)
  Receive Date: 20220701
  Receipt Date: 20220701
  Transmission Date: 20221026
  Serious: Yes (Other)
  Sender: FDA-Public Use
  Company Number: None

PATIENT

DRUGS (2)
  1. ACARIZAX [Suspect]
     Active Substance: DERMATOPHAGOIDES FARINAE\DERMATOPHAGOIDES PTERONYSSINUS
     Indication: Dust allergy
     Dosage: 12 SQ-HDM, QD
     Route: 060
     Dates: start: 20210601, end: 20220301
  2. ACARIZAX [Suspect]
     Active Substance: DERMATOPHAGOIDES FARINAE\DERMATOPHAGOIDES PTERONYSSINUS
     Indication: Immune tolerance induction

REACTIONS (1)
  - Oesophagitis [Recovered/Resolved]

NARRATIVE: CASE EVENT DATE: 20220118
